FAERS Safety Report 18170524 (Version 1)
Quarter: 2020Q3

REPORT INFORMATION
  Report Type: Spontaneous
  Country: DE (occurrence: DE)
  Receive Date: 20200819
  Receipt Date: 20200819
  Transmission Date: 20201103
  Serious: Yes (Death, Life-Threatening, Hospitalization)
  Sender: FDA-Public Use
  Company Number: DE-TEVA-2020-DE-1815403

PATIENT
  Age: 80 Year
  Sex: Female

DRUGS (11)
  1. TILIDINE/NALOXONE [Concomitant]
     Active Substance: NALOXONE HYDROCHLORIDE\TILIDINE HYDROCHLORIDE
     Dosage: 2 DOSAGE FORMS DAILY; 50|4 MG, 1?0?1?0
  2. FENOFIBRATE. [Suspect]
     Active Substance: FENOFIBRATE
     Dosage: 200 MILLIGRAM DAILY; 0?0?1?0
  3. TORASEMIDE [Suspect]
     Active Substance: TORSEMIDE
     Dosage: 2 DOSAGE FORMS DAILY; 5 MG, 2?0?0?0
  4. METOPROLOL. [Concomitant]
     Active Substance: METOPROLOL
     Dosage: 95 MILLIGRAM DAILY; 1?0?0?0
  5. SITAGLIPTIN [Concomitant]
     Active Substance: SITAGLIPTIN
     Dosage: 100 MILLIGRAM DAILY; 1?0?1?0
  6. METAMIZOL [Concomitant]
     Active Substance: METAMIZOLE SODIUM
     Dosage: IF NECESSARY
  7. METFORMIN [Concomitant]
     Active Substance: METFORMIN HYDROCHLORIDE
     Dosage: 1 DOSAGE FORMS DAILY; 850 MG, 0.5?0?0.5?0
  8. PREGABALIN. [Concomitant]
     Active Substance: PREGABALIN
     Dosage: 75 MILLIGRAM DAILY; 1?0?0?0
  9. CARBIMAZOL [Concomitant]
     Active Substance: CARBIMAZOLE
     Dosage: .5 DOSAGE FORMS DAILY; 10 MG, 0.5?0?0?0
  10. PANTOPRAZOL [Concomitant]
     Active Substance: PANTOPRAZOLE SODIUM
     Dosage: 40 MG, IF NECESSARY
  11. RIVAROXABAN [Concomitant]
     Active Substance: RIVAROXABAN
     Dosage: 15 MILLIGRAM DAILY; 1?0?0?0

REACTIONS (9)
  - Depressed level of consciousness [Unknown]
  - Disturbance in attention [Unknown]
  - Depressed level of consciousness [Unknown]
  - Gait disturbance [Unknown]
  - General physical health deterioration [Unknown]
  - Infection [Unknown]
  - Asthenia [Unknown]
  - Balance disorder [Unknown]
  - Diarrhoea [Unknown]

NARRATIVE: CASE EVENT DATE: 20200311
